FAERS Safety Report 9174569 (Version 1)
Quarter: 2013Q1

REPORT INFORMATION
  Report Type: Spontaneous
  Country: US (occurrence: None)
  Receive Date: 20130313
  Receipt Date: 20130313
  Transmission Date: 20140127
  Serious: Yes (Hospitalization)
  Sender: FDA-Public Use
  Company Number: 2013SUN00301

PATIENT
  Age: 62 Year
  Sex: Male

DRUGS (3)
  1. BUPROPION EXTENDED RELEASE (BUPROPION HYDROCHLORIDE) [Suspect]
     Indication: MAJOR DEPRESSION
  2. CITALOPRAM HYDROBROMIDE [Suspect]
  3. TRAMADOL HCL 50 MG TAB [Suspect]

REACTIONS (2)
  - Serotonin syndrome [None]
  - Drug interaction [None]
